FAERS Safety Report 15998035 (Version 1)
Quarter: 2019Q1

REPORT INFORMATION
  Report Type: Report from Study
  Country: US (occurrence: US)
  Receive Date: 20190222
  Receipt Date: 20190222
  Transmission Date: 20190418
  Serious: Yes (Other)
  Sender: FDA-Public Use
  Company Number: US-ELI_LILLY_AND_COMPANY-US201902006367

PATIENT
  Age: 57 Year
  Sex: Male

DRUGS (2)
  1. LANTUS [Concomitant]
     Active Substance: INSULIN GLARGINE
     Indication: TYPE 1 DIABETES MELLITUS
     Dosage: 60 U, DAILY (AT NIGHT)
     Route: 065
  2. INSULIN, LISPRO [Suspect]
     Active Substance: INSULIN LISPRO
     Indication: TYPE 1 DIABETES MELLITUS
     Dosage: 20 U, PRN
     Route: 058

REACTIONS (7)
  - Seizure [Recovered/Resolved]
  - Blood glucose decreased [Recovered/Resolved]
  - Abnormal behaviour [Recovered/Resolved]
  - Altered state of consciousness [Recovered/Resolved]
  - Blood glucose increased [Recovered/Resolved]
  - Aggression [Recovered/Resolved]
  - Confusional state [Recovered/Resolved]

NARRATIVE: CASE EVENT DATE: 20190213
